FAERS Safety Report 9948661 (Version 1)
Quarter: 2014Q1

REPORT INFORMATION
  Report Type: Spontaneous
  Country: US (occurrence: US)
  Receive Date: 20140304
  Receipt Date: 20140304
  Transmission Date: 20141002
  Serious: No
  Sender: FDA-Public Use
  Company Number: US-009507513-1402USA013363

PATIENT
  Age: 27 Year
  Sex: Female

DRUGS (2)
  1. IMPLANON [Suspect]
     Indication: MENSTRUATION DELAYED
     Dosage: 1 ROD FOR 3 YEARS IN LEFT ARM
     Route: 059
     Dates: start: 20130408
  2. TAGAMET [Concomitant]
     Indication: ABDOMINAL DISCOMFORT

REACTIONS (2)
  - Haemorrhage [Unknown]
  - Drug administration error [Unknown]
